FAERS Safety Report 6338634-X (Version None)
Quarter: 2009Q3

REPORT INFORMATION
  Report Type: 
  Country: None (occurrence: None)
  Receive Date: 20090903
  Receipt Date: 20090824
  Transmission Date: 20100115
  Serious: Yes (Hospitalization)
  Sender: FDA-Public Use
  Company Number: US-BIOGENIDEC-2008BI032829

PATIENT
  Age: 26 Year
  Sex: Female
  Weight: 86 kg

DRUGS (8)
  1. TYSABRI [Suspect]
     Indication: MULTIPLE SCLEROSIS
     Route: 042
     Dates: start: 20080924, end: 20081201
  2. CYMBALTA [Concomitant]
     Indication: DRUG USE FOR UNKNOWN INDICATION
  3. PROTONIX [Concomitant]
     Indication: DRUG USE FOR UNKNOWN INDICATION
  4. VITAMIN TAB [Concomitant]
     Indication: DRUG USE FOR UNKNOWN INDICATION
  5. TOPAMAX [Concomitant]
     Indication: DRUG USE FOR UNKNOWN INDICATION
  6. SEROQUEL [Concomitant]
     Indication: DRUG USE FOR UNKNOWN INDICATION
  7. DETROL [Concomitant]
     Indication: URINARY INCONTINENCE
  8. DETROL [Concomitant]

REACTIONS (8)
  - DEPRESSION SUICIDAL [None]
  - FALL [None]
  - HISTRIONIC PERSONALITY DISORDER [None]
  - LOWER LIMB FRACTURE [None]
  - MULTIPLE SCLEROSIS RELAPSE [None]
  - MYOPIA [None]
  - SYNCOPE [None]
  - TREMOR [None]
